FAERS Safety Report 5125389-X (Version None)
Quarter: 2006Q4

REPORT INFORMATION
  Report Type: 
  Country: None (occurrence: None)
  Receive Date: 20061006
  Receipt Date: 20060926
  Transmission Date: 20070319
  Serious: Yes (Hospitalization)
  Sender: FDA-Public Use
  Company Number: 2006097070

PATIENT
  Age: 42 Year
  Sex: Female

DRUGS (2)
  1. BENADRYL [Suspect]
     Indication: HYPERSENSITIVITY
     Dosage: 2 TABLETS ONCE, ORAL
     Route: 048
     Dates: start: 20060811, end: 20060811
  2. HYZAAR [Concomitant]

REACTIONS (13)
  - ABDOMINAL PAIN [None]
  - CHEST PAIN [None]
  - DYSGEUSIA [None]
  - DYSPNOEA [None]
  - EXTRASYSTOLES [None]
  - HEART RATE INCREASED [None]
  - HYPERHIDROSIS [None]
  - NAUSEA [None]
  - NERVOUSNESS [None]
  - OCULAR HYPERAEMIA [None]
  - PALLOR [None]
  - VISION BLURRED [None]
  - VOMITING [None]
